FAERS Safety Report 8781831 (Version 1)
Quarter: 2012Q4

REPORT INFORMATION
  Report Type: 
  Country: US (occurrence: US)
  Receive Date: 20120913
  Receipt Date: 20120913
  Transmission Date: 20130627
  Serious: No
  Sender: FDA-Public Use
  Company Number: US-PFIZER INC-2012224678

PATIENT
  Age: 66 Year
  Sex: Female
  Weight: 122 kg

DRUGS (5)
  1. CHANTIX [Suspect]
     Indication: SMOKING CESSATION THERAPY
     Dosage: 0.5 mg, 1x/day
     Route: 048
     Dates: start: 201208, end: 201208
  2. CHANTIX [Suspect]
     Dosage: 1 mg, 2x/day
     Route: 048
     Dates: start: 201208
  3. LASIX [Concomitant]
     Dosage: 20 mg, UNK
  4. XOPENEX [Concomitant]
     Dosage: UNK
  5. FLOMAX [Concomitant]
     Dosage: UNK

REACTIONS (2)
  - Tremor [Recovered/Resolved]
  - Anxiety [Recovered/Resolved]
